FAERS Safety Report 6995013-X (Version None)
Quarter: 2010Q3

REPORT INFORMATION
  Report Type: 
  Country: None (occurrence: None)
  Receive Date: 20100917
  Receipt Date: 20091016
  Transmission Date: 20110219
  Serious: Yes (Other)
  Sender: FDA-Public Use
  Company Number: HQWYE703811OCT04

PATIENT
  Sex: Female
  Weight: 88.08 kg

DRUGS (4)
  1. PREMPRO [Suspect]
     Indication: HOT FLUSH
  2. ZOCOR [Concomitant]
  3. ACETYLSALICYLIC ACID [Concomitant]
  4. PREMARIN [Suspect]
     Indication: HOT FLUSH

REACTIONS (3)
  - METASTASES TO LYMPH NODES [None]
  - OVARIAN CANCER METASTATIC [None]
  - PNEUMONIA [None]
